FAERS Safety Report 5799359-2 (Version None)
Quarter: 2008Q3

REPORT INFORMATION
  Report Type: 
  Country: None (occurrence: None)
  Receive Date: 20080702
  Receipt Date: 20080624
  Transmission Date: 20090109
  Serious: Yes (Other)
  Sender: FDA-Public Use
  Company Number: US-PFIZER INC-2008053414

PATIENT
  Sex: Female
  Weight: 81.818 kg

DRUGS (4)
  1. DETROL LA [Suspect]
     Indication: NOCTURIA
  2. LEVOTHROID [Concomitant]
  3. ACETYLSALICYLIC ACID SRT [Concomitant]
  4. MULTI-VITAMINS [Concomitant]

REACTIONS (2)
  - DEHYDRATION [None]
  - GAIT DISTURBANCE [None]
